FAERS Safety Report 9201956 (Version 2)
Quarter: 2013Q3

REPORT INFORMATION
  Report Type: Spontaneous
  Country: US (occurrence: None)
  Receive Date: 20130328
  Receipt Date: 20130708
  Transmission Date: 20140515
  Serious: Yes (Other)
  Sender: FDA-Public Use
  Company Number: 1640609

PATIENT
  Age: 39 Year
  Sex: Female

DRUGS (1)
  1. SODIUM CHLORIDE [Suspect]
     Indication: HYSTEROSCOPY
     Dates: start: 20130314, end: 20130314

REACTIONS (1)
  - Anaphylactic reaction [None]
